FAERS Safety Report 11867175 (Version 2)
Quarter: 2016Q1

REPORT INFORMATION
  Report Type: Report from Study
  Country: BR (occurrence: BR)
  Receive Date: 20151224
  Receipt Date: 20160106
  Transmission Date: 20160526
  Serious: Yes (Other)
  Sender: FDA-Public Use
  Company Number: PHHY2015BR102225

PATIENT
  Sex: Female
  Weight: 56 kg

DRUGS (2)
  1. ZOMETA [Suspect]
     Active Substance: ZOLEDRONIC ACID
     Indication: BONE DISORDER
     Dosage: UNK, QMO
     Route: 065
  2. SANDOSTATIN LAR DEPOT [Suspect]
     Active Substance: OCTREOTIDE ACETATE
     Indication: NEUROENDOCRINE TUMOUR
     Route: 030

REACTIONS (17)
  - Pain [Unknown]
  - Gait disturbance [Unknown]
  - Decreased appetite [Unknown]
  - Cognitive disorder [Unknown]
  - Dyspnoea [Unknown]
  - Drug ineffective [Unknown]
  - Metastases to lung [Unknown]
  - Metastases to liver [Unknown]
  - Blood chromogranin A increased [Unknown]
  - Cardiac arrest [Unknown]
  - Metastases to bone [Unknown]
  - Metastases to lymph nodes [Unknown]
  - Weight decreased [Unknown]
  - Lethargy [Unknown]
  - Asthenia [Unknown]
  - Malignant neoplasm progression [Unknown]
  - Malaise [Unknown]

NARRATIVE: CASE EVENT DATE: 2014
